FAERS Safety Report 5374921-X (Version None)
Quarter: 2007Q2

REPORT INFORMATION
  Report Type: 
  Country: None (occurrence: None)
  Receive Date: 20070629
  Receipt Date: 20070618
  Transmission Date: 20071010
  Serious: Yes (Hospitalization)
  Sender: FDA-Public Use
  Company Number: ES-ELI_LILLY_AND_COMPANY-ES200704004413

PATIENT
  Age: 82 Year
  Sex: Female

DRUGS (2)
  1. FORTEO [Suspect]
     Indication: OSTEOPOROSIS
     Dosage: 20 UG, DAILY (1/D)
     Route: 058
     Dates: start: 20061001
  2. DIEMIL [Concomitant]
     Dosage: UNK, AS NEEDED
     Route: 065

REACTIONS (5)
  - ABSCESS [None]
  - BACK PAIN [None]
  - METASTASES TO LIVER [None]
  - METASTASES TO LUNG [None]
  - OSTEOMYELITIS [None]
